FAERS Safety Report 10280936 (Version 1)
Quarter: 2014Q3

REPORT INFORMATION
  Report Type: Spontaneous
  Country: US (occurrence: None)
  Receive Date: 20140702
  Receipt Date: 20140702
  Transmission Date: 20150326
  Serious: Yes (Disabling)
  Sender: FDA-Public Use
  Company Number: None

PATIENT
  Age: 62 Year
  Sex: Male
  Weight: 81.65 kg

DRUGS (1)
  1. MYCOPHENOLATE [Suspect]
     Active Substance: MYCOPHENOLIC ACID
     Indication: MYASTHENIA GRAVIS
     Dosage: 2 TABLETS TWICE DAILY TAKEN BY MOUTH
     Route: 048
     Dates: start: 20131114, end: 20140701

REACTIONS (15)
  - Therapy change [None]
  - Apathy [None]
  - Pain [None]
  - Chest pain [None]
  - Nervousness [None]
  - Malaise [None]
  - Dysuria [None]
  - Fatigue [None]
  - Muscular weakness [None]
  - Visual impairment [None]
  - Depression [None]
  - Anxiety [None]
  - Headache [None]
  - Abdominal pain upper [None]
  - Dyspnoea [None]

NARRATIVE: CASE EVENT DATE: 20140622
